FAERS Safety Report 14699202 (Version 1)
Quarter: 2018Q1

REPORT INFORMATION
  Report Type: Spontaneous
  Country: FR (occurrence: FR)
  Receive Date: 20180330
  Receipt Date: 20180330
  Transmission Date: 20180509
  Serious: Yes (Death, Hospitalization, Other)
  Sender: FDA-Public Use
  Company Number: FR-AUROBINDO-AUR-APL-2018-017316

PATIENT
  Age: 70 Year
  Sex: Male

DRUGS (3)
  1. TRAMADOL. [Suspect]
     Active Substance: TRAMADOL
     Indication: PRODUCT USED FOR UNKNOWN INDICATION
     Dosage: 50 MG, UNK
     Route: 065
     Dates: start: 20170316
  2. TRAMADOL. [Suspect]
     Active Substance: TRAMADOL
     Indication: TENDON DISORDER
     Dosage: 100 MG, UNK
     Route: 065
     Dates: start: 20170315
  3. NIVOLUMAB [Suspect]
     Active Substance: NIVOLUMAB
     Indication: LUNG NEOPLASM MALIGNANT
     Dosage: 214 MG, UNK
     Route: 042
     Dates: start: 20170302

REACTIONS (10)
  - Condition aggravated [Unknown]
  - Metastases to bone [Fatal]
  - Tendon disorder [Fatal]
  - Decreased appetite [Fatal]
  - Cognitive disorder [Fatal]
  - Malignant neoplasm progression [Fatal]
  - Syncope [Fatal]
  - Asthenia [Not Recovered/Not Resolved]
  - Somnolence [Unknown]
  - General physical health deterioration [Fatal]

NARRATIVE: CASE EVENT DATE: 20170306
